FAERS Safety Report 5375382-7 (Version None)
Quarter: 2007Q2

REPORT INFORMATION
  Report Type: 
  Country: None (occurrence: None)
  Receive Date: 20070622
  Receipt Date: 20060801
  Transmission Date: 20071010
  Serious: Yes (Other)
  Sender: FDA-Public Use
  Company Number: 29463

PATIENT
  Age: 72 Year
  Sex: Female
  Weight: 45.3597 kg

DRUGS (3)
  1. PAMIDRONATE DISODIUM FOR INJ. 30MG [Suspect]
     Indication: OSTEOPOROSIS
     Dosage: 60 MG IN 500 ML SALINE/IV/OVER 5
     Route: 042
     Dates: start: 20060201
  2. LOTENSIN [Concomitant]
  3. XANAX [Concomitant]

REACTIONS (2)
  - CONFUSIONAL STATE [None]
  - MENTAL DISORDER [None]
